FAERS Safety Report 8190084-X (Version None)
Quarter: 2012Q1

REPORT INFORMATION
  Report Type: 
  Country: None (occurrence: None)
  Receive Date: 20120307
  Receipt Date: 20120307
  Transmission Date: 20120608
  Serious: Yes (Hospitalization)
  Sender: FDA-Public Use
  Company Number: None

PATIENT

DRUGS (1)
  1. SPRINTEC [Suspect]

REACTIONS (2)
  - ASTHMA [None]
  - PULMONARY EMBOLISM [None]
